FAERS Safety Report 6281675 (Version 3)
Quarter: 2017Q3

REPORT INFORMATION
  Report Type: Spontaneous
  Country: US (occurrence: US)
  Receive Date: 20061023
  Receipt Date: 20170926
  Transmission Date: 20171128
  Serious: Yes (Other)
  Sender: FDA-Public Use
  Company Number: US-PFIZER INC-2006126237

PATIENT
  Sex: Female

DRUGS (3)
  1. VIOXX [Suspect]
     Active Substance: ROFECOXIB
     Dosage: UNK
     Dates: start: 20000601, end: 20010101
  2. CELEBREX [Suspect]
     Active Substance: CELECOXIB
     Dosage: UNK
  3. BEXTRA [Suspect]
     Active Substance: VALDECOXIB
     Indication: ARTHRITIS
     Dosage: UNK, 1X/DAY
     Dates: start: 20041024, end: 20041226

REACTIONS (4)
  - Dizziness [Unknown]
  - Tinnitus [Unknown]
  - Ischaemic stroke [Unknown]
  - Balance disorder [Unknown]

NARRATIVE: CASE EVENT DATE: 20000925
